FAERS Safety Report 24451341 (Version 1)
Quarter: 2024Q4

REPORT INFORMATION
  Report Type: Spontaneous
  Country: US (occurrence: US)
  Receive Date: 20241017
  Receipt Date: 20241017
  Transmission Date: 20250114
  Serious: No
  Sender: 3M
  Company Number: US-3MMEDICAL-2024-US-055733

PATIENT
  Sex: Male

DRUGS (1)
  1. DURAPREP [Suspect]
     Active Substance: IODINE POVACRYLEX\ISOPROPYL ALCOHOL
     Indication: Preoperative care
     Route: 061

REACTIONS (1)
  - Wound [Unknown]

NARRATIVE: CASE EVENT DATE: 20240321
